FAERS Safety Report 22233901 (Version 1)
Quarter: 2023Q2

REPORT INFORMATION
  Report Type: Spontaneous
  Country: US (occurrence: None)
  Receive Date: 20230420
  Receipt Date: 20230420
  Transmission Date: 20230722
  Serious: No
  Sender: FDA-Public Use
  Company Number: US-ROCHE-3144655

PATIENT
  Sex: Male

DRUGS (9)
  1. ESBRIET [Suspect]
     Active Substance: PIRFENIDONE
     Indication: Interstitial lung disease
     Route: 048
     Dates: start: 20220201
  2. ASPIRIN [Concomitant]
     Active Substance: ASPIRIN
  3. ATORVASTATIN [Concomitant]
     Active Substance: ATORVASTATIN
  4. DILTIAZEM HYDROCHLORIDE [Concomitant]
     Active Substance: DILTIAZEM HYDROCHLORIDE
  5. GLIMEPIRIDE [Concomitant]
     Active Substance: GLIMEPIRIDE
  6. HYDROCHLOROTHIAZIDE [Concomitant]
     Active Substance: HYDROCHLOROTHIAZIDE
  7. METFORMIN [Concomitant]
     Active Substance: METFORMIN HYDROCHLORIDE
  8. METOPROLOL [Concomitant]
     Active Substance: METOPROLOL
  9. PIOGLITAZONE [Concomitant]
     Active Substance: PIOGLITAZONE

REACTIONS (3)
  - Abdominal pain upper [Recovered/Resolved]
  - Rash pruritic [Recovered/Resolved]
  - Sunburn [Recovered/Resolved]
